FAERS Safety Report 12313222 (Version 1)
Quarter: 2016Q2

REPORT INFORMATION
  Report Type: Spontaneous
  Country: CH (occurrence: CH)
  Receive Date: 20160428
  Receipt Date: 20160428
  Transmission Date: 20160815
  Serious: Yes (Hospitalization)
  Sender: FDA-Public Use
  Company Number: CH-ROCHE-1748765

PATIENT
  Age: 66 Year
  Sex: Female

DRUGS (7)
  1. ROCEPHIN [Suspect]
     Active Substance: CEFTRIAXONE SODIUM
     Indication: PRODUCT USED FOR UNKNOWN INDICATION
     Dosage: AMPOULES, INTRAVENOUS
     Route: 041
     Dates: start: 20160318, end: 201603
  2. ELIQUIS [Concomitant]
     Active Substance: APIXABAN
     Route: 048
  3. CLEXANE [Suspect]
     Active Substance: ENOXAPARIN SODIUM
     Indication: PRODUCT USED FOR UNKNOWN INDICATION
     Dosage: VIALS, CARTRIDGES
     Route: 058
     Dates: start: 20160318, end: 20160324
  4. BELOC-ZOK [Concomitant]
     Active Substance: METOPROLOL SUCCINATE
     Dosage: RETARDTABLETTEN
     Route: 048
  5. ATORVASTATIN [Concomitant]
     Active Substance: ATORVASTATIN
     Route: 048
  6. CORDARONE [Suspect]
     Active Substance: AMIODARONE HYDROCHLORIDE
     Indication: ATRIAL FIBRILLATION
     Route: 048
     Dates: start: 20160323, end: 201603
  7. EXFORGE HCT [Concomitant]
     Active Substance: AMLODIPINE BESYLATE\HYDROCHLOROTHIAZIDE\VALSARTAN
     Dosage: 5/160/12.5 MG/DAY,
     Route: 048

REACTIONS (2)
  - Rash generalised [Recovered/Resolved]
  - Muscle haemorrhage [Recovered/Resolved]

NARRATIVE: CASE EVENT DATE: 20160324
